FAERS Safety Report 17481187 (Version 1)
Quarter: 2020Q1

REPORT INFORMATION
  Report Type: Spontaneous
  Country: FR (occurrence: FR)
  Receive Date: 20200302
  Receipt Date: 20200302
  Transmission Date: 20200409
  Serious: Yes (Other)
  Sender: FDA-Public Use
  Company Number: FR-ROCHE-2558871

PATIENT
  Age: 61 Year
  Sex: Female

DRUGS (10)
  1. GEMCITABINE. [Suspect]
     Active Substance: GEMCITABINE
     Indication: OVARIAN CANCER METASTATIC
     Route: 042
     Dates: start: 20200124, end: 20200124
  2. AVASTIN [Suspect]
     Active Substance: BEVACIZUMAB
     Indication: OVARIAN CANCER METASTATIC
     Route: 042
     Dates: start: 20200124, end: 20200124
  3. METOCLOPRAMIDE. [Suspect]
     Active Substance: METOCLOPRAMIDE
     Indication: ANTIEMETIC SUPPORTIVE CARE
     Route: 042
     Dates: start: 20200124, end: 20200124
  4. BISOPROLOL HEMIFUMARATE [Concomitant]
     Active Substance: BISOPROLOL FUMARATE
  5. FENOFIBRATE. [Concomitant]
     Active Substance: FENOFIBRATE
  6. KARDEGIC [Concomitant]
     Active Substance: ASPIRIN DL-LYSINE
  7. ESOMEPRAZOLE. [Concomitant]
     Active Substance: ESOMEPRAZOLE MAGNESIUM
  8. SKENAN [Concomitant]
     Active Substance: MORPHINE SULFATE
  9. DOLIPRANE [Concomitant]
     Active Substance: ACETAMINOPHEN
  10. IMOVANE [Concomitant]
     Active Substance: ZOPICLONE

REACTIONS (3)
  - Rash maculo-papular [Recovered/Resolved with Sequelae]
  - Pruritus [Recovered/Resolved]
  - Influenza like illness [Recovered/Resolved]

NARRATIVE: CASE EVENT DATE: 20200126
